FAERS Safety Report 4981655-X (Version None)
Quarter: 2006Q2

REPORT INFORMATION
  Report Type: 
  Country: None (occurrence: None)
  Receive Date: 20060425
  Receipt Date: 20060411
  Transmission Date: 20061013
  Serious: Yes (Disabling)
  Sender: FDA-Public Use
  Company Number: 2006SE02093

PATIENT
  Age: 12925 Day
  Sex: Female

DRUGS (2)
  1. SEROQUEL [Suspect]
     Indication: SLEEP DISORDER
     Route: 048
     Dates: start: 20051001
  2. NITRAZEPAM [Suspect]
     Indication: SLEEP DISORDER
     Dates: start: 20051001

REACTIONS (5)
  - DRY SKIN [None]
  - PAIN OF SKIN [None]
  - PRURITUS [None]
  - SCAR [None]
  - SKIN WRINKLING [None]
